FAERS Safety Report 18991321 (Version 2)
Quarter: 2022Q3

REPORT INFORMATION
  Report Type: Spontaneous
  Country: US (occurrence: US)
  Receive Date: 20210310
  Receipt Date: 20220915
  Transmission Date: 20221027
  Serious: Yes (Other)
  Sender: FDA-Public Use
  Company Number: US-INCYTE CORPORATION-2021IN001784

PATIENT

DRUGS (2)
  1. JAKAFI [Suspect]
     Active Substance: RUXOLITINIB
     Indication: Chronic graft versus host disease in skin
     Dosage: 5 MILLIGRAM, BID WITH MAXIMUM DAILY DOSE 10 MG
     Route: 065
  2. JAKAFI [Suspect]
     Active Substance: RUXOLITINIB
     Indication: Chronic graft versus host disease in lung
     Dosage: UNK (RESTARTED)
     Route: 065

REACTIONS (7)
  - Gastroenteritis adenovirus [Unknown]
  - Pneumonia cytomegaloviral [Unknown]
  - Pneumonia streptococcal [Unknown]
  - Septic shock [Unknown]
  - Neutropenia [Recovered/Resolved]
  - Therapy partial responder [Unknown]
  - Off label use [Unknown]
